FAERS Safety Report 25995046 (Version 1)
Quarter: 2025Q4

REPORT INFORMATION
  Report Type: Spontaneous
  Country: RS (occurrence: RS)
  Receive Date: 20251104
  Receipt Date: 20251104
  Transmission Date: 20260118
  Serious: Yes (Other)
  Sender: ROCHE
  Company Number: RS-BoehringerIngelheim-2025-BI-103381

PATIENT
  Age: 38 Year
  Sex: Female

DRUGS (1)
  1. ALTEPLASE [Suspect]
     Active Substance: ALTEPLASE
     Indication: Cerebrovascular accident
     Route: 042

REACTIONS (3)
  - Brain stem infarction [Recovering/Resolving]
  - Subarachnoid haemorrhage [Recovering/Resolving]
  - Ruptured cerebral aneurysm [Recovering/Resolving]
